FAERS Safety Report 7311350-3 (Version None)
Quarter: 2011Q1

REPORT INFORMATION
  Report Type: 
  Country: None (occurrence: None)
  Receive Date: 20110224
  Receipt Date: 20110211
  Transmission Date: 20110831
  Serious: Yes (Death, Other)
  Sender: FDA-Public Use
  Company Number: CA-NOVEN-10CA001373

PATIENT
  Age: 49 Year
  Sex: Male

DRUGS (10)
  1. LITHIUM CARBONATE [Suspect]
     Dosage: 600 MG, BID
     Route: 048
  2. RISPERIDONE [Concomitant]
     Dosage: UNK
     Route: 065
  3. CHLORPROMAZINE [Concomitant]
     Indication: PRODUCT USED FOR UNKNOWN INDICATION
  4. RAMIPRIL [Concomitant]
     Indication: PRODUCT USED FOR UNKNOWN INDICATION
  5. TEGRETOL [Concomitant]
     Indication: PRODUCT USED FOR UNKNOWN INDICATION
  6. ASA [Concomitant]
     Indication: PRODUCT USED FOR UNKNOWN INDICATION
  7. CRESTOR [Concomitant]
     Indication: PRODUCT USED FOR UNKNOWN INDICATION
  8. CARBAMAZEPINE [Concomitant]
     Dosage: UNK
     Route: 065
  9. METFORMIN [Concomitant]
     Indication: PRODUCT USED FOR UNKNOWN INDICATION
  10. VITAMIN B-12 [Concomitant]
     Indication: PRODUCT USED FOR UNKNOWN INDICATION

REACTIONS (8)
  - BRUGADA SYNDROME [None]
  - ANTIPSYCHOTIC DRUG LEVEL ABOVE THERAPEUTIC [None]
  - ELECTROCARDIOGRAM QT PROLONGED [None]
  - DYSARTHRIA [None]
  - HYPERKALAEMIA [None]
  - SUDDEN DEATH [None]
  - ATAXIA [None]
  - TREMOR [None]
